FAERS Safety Report 5927948-0 (Version None)
Quarter: 2008Q4

REPORT INFORMATION
  Report Type: 
  Country: None (occurrence: None)
  Receive Date: 20081021
  Receipt Date: 20081013
  Transmission Date: 20090506
  Serious: Yes (Hospitalization)
  Sender: FDA-Public Use
  Company Number: ADE# 08-167

PATIENT
  Age: 41 Year
  Sex: Female

DRUGS (1)
  1. MIDRIN CAPSULES - CARACO [Suspect]
     Indication: MIGRAINE
     Dosage: 1-2 CAPSULES
     Dates: start: 20030101

REACTIONS (4)
  - DRUG SCREEN POSITIVE [None]
  - HALLUCINATION, AUDITORY [None]
  - LABORATORY TEST INTERFERENCE [None]
  - STUPOR [None]
